FAERS Safety Report 14668646 (Version 1)
Quarter: 2018Q1

REPORT INFORMATION
  Report Type: Spontaneous
  Country: FR (occurrence: FR)
  Receive Date: 20180322
  Receipt Date: 20180322
  Transmission Date: 20180509
  Serious: Yes (Hospitalization)
  Sender: FDA-Public Use
  Company Number: FR-ADIENNEP-2018AD000037

PATIENT
  Age: 57 Year
  Sex: Male

DRUGS (1)
  1. TEPADINA [Suspect]
     Active Substance: THIOTEPA
     Indication: TRANSPLANT
     Dosage: 5 MG/KG
     Route: 042
     Dates: start: 20171109, end: 20171110

REACTIONS (1)
  - Diarrhoea [Not Recovered/Not Resolved]

NARRATIVE: CASE EVENT DATE: 20171113
